FAERS Safety Report 13593372 (Version 1)
Quarter: 2017Q2

REPORT INFORMATION
  Report Type: Spontaneous
  Country: US (occurrence: US)
  Receive Date: 20170530
  Receipt Date: 20170530
  Transmission Date: 20170830
  Serious: Yes (Other)
  Sender: FDA-Public Use
  Company Number: US-SMITH AND NEPHEW, INC-2017SMT00373

PATIENT
  Age: 53 Year
  Sex: Male
  Weight: 104.31 kg

DRUGS (2)
  1. UNSPECIFIED MEDICATIONS [Concomitant]
     Active Substance: UNSPECIFIED INGREDIENT
  2. REGRANEX [Suspect]
     Active Substance: BECAPLERMIN
     Indication: DIABETIC ULCER
     Dosage: UNK, 1X/DAY FOR 12 HOURS ON AND 12 HOURS OFF
     Route: 061
     Dates: start: 201704, end: 201705

REACTIONS (3)
  - Wound infection staphylococcal [Unknown]
  - Hyperkeratosis [Unknown]
  - Wound dehiscence [Unknown]

NARRATIVE: CASE EVENT DATE: 201705
